FAERS Safety Report 8339376-1 (Version None)
Quarter: 2012Q2

REPORT INFORMATION
  Report Type: 
  Country: None (occurrence: None)
  Receive Date: 20120502
  Receipt Date: 20120417
  Transmission Date: 20120825
  Serious: Yes (Life-Threatening, Hospitalization)
  Sender: FDA-Public Use
  Company Number: ACET20120003

PATIENT
  Age: 29 Year
  Sex: Male

DRUGS (4)
  1. VALPROATE SODIUM [Suspect]
     Indication: OVERDOSE
     Dosage: 2 GM, UNK, ORAL
     Route: 048
  2. AMITRIPTYLINE HCL [Suspect]
     Indication: OVERDOSE
     Dosage: 750 MG, UNK, ORAL
     Route: 048
  3. OLANZAPINE [Suspect]
     Indication: OVERDOSE
     Dosage: 200 MG, UNK, ORAL
     Route: 048
  4. ACETAMINOPHEN [Suspect]
     Indication: OVERDOSE
     Dosage: 50 GM, UNK, ORAL
     Route: 048

REACTIONS (11)
  - DRUG LEVEL INCREASED [None]
  - HAEMORRHAGE [None]
  - OVERDOSE [None]
  - BLOOD LACTIC ACID INCREASED [None]
  - IMPAIRED GASTRIC EMPTYING [None]
  - ALANINE AMINOTRANSFERASE INCREASED [None]
  - MULTI-ORGAN FAILURE [None]
  - ASPARTATE AMINOTRANSFERASE INCREASED [None]
  - COAGULATION TEST ABNORMAL [None]
  - ACUTE HEPATIC FAILURE [None]
  - ENCEPHALOPATHY [None]
